FAERS Safety Report 9528368 (Version 1)
Quarter: 2013Q1

REPORT INFORMATION
  Report Type: Spontaneous
  Country: US (occurrence: None)
  Receive Date: 20130314
  Receipt Date: 20130314
  Transmission Date: 20140127
  Serious: No
  Sender: FDA-Public Use
  Company Number: 1211USA007399

PATIENT
  Age: 59 Year
  Sex: Female

DRUGS (3)
  1. VICTRELIS [Suspect]
     Indication: HEPATITIS C
     Dates: start: 20120122, end: 20120629
  2. RIBAVIRIN [Suspect]
     Indication: HEPATITIS C
     Dates: start: 20050101, end: 20120629
  3. PEGINTRON [Suspect]
     Indication: HEPATITIS C
     Dates: start: 20050101, end: 20120629

REACTIONS (1)
  - Drug ineffective [None]
